FAERS Safety Report 8420039-9 (Version None)
Quarter: 2012Q2

REPORT INFORMATION
  Report Type: 
  Country: None (occurrence: None)
  Receive Date: 20120607
  Receipt Date: 20120606
  Transmission Date: 20120825
  Serious: Yes (Disabling)
  Sender: FDA-Public Use
  Company Number: US-PURDUE-USA-2012-0084733

PATIENT
  Age: 64 Year
  Sex: Female

DRUGS (1)
  1. DILAUDID-HP [Suspect]
     Indication: PRODUCT USED FOR UNKNOWN INDICATION
     Dosage: UNK
     Dates: start: 20120516, end: 20120516

REACTIONS (2)
  - AMNESIA [None]
  - DRUG HYPERSENSITIVITY [None]
